FAERS Safety Report 13728905 (Version 1)
Quarter: 2017Q3

REPORT INFORMATION
  Report Type: Spontaneous
  Country: US (occurrence: US)
  Receive Date: 20170707
  Receipt Date: 20170707
  Transmission Date: 20171127
  Serious: No
  Sender: FDA-Public Use
  Company Number: US-JNJFOC-20170201557

PATIENT
  Sex: Male
  Weight: 79.38 kg

DRUGS (1)
  1. INVEGA [Suspect]
     Active Substance: PALIPERIDONE
     Indication: SCHIZOPHRENIA
     Dosage: ONCE IN MORNING, AND ONCE IN AFTERNOON
     Route: 048

REACTIONS (3)
  - Overdose [Unknown]
  - Drug ineffective [Unknown]
  - Hypokinesia [Unknown]
